FAERS Safety Report 9843287 (Version 1)
Quarter: 2014Q1

REPORT INFORMATION
  Report Type: Report from Study
  Country: MX (occurrence: MX)
  Receive Date: 20140124
  Receipt Date: 20140124
  Transmission Date: 20141002
  Serious: Yes (Other)
  Sender: FDA-Public Use
  Company Number: PHHY2009MX071876

PATIENT
  Age: 75 Year
  Sex: Female

DRUGS (7)
  1. ACLASTA [Suspect]
     Indication: OSTEOPOROSIS
     Dosage: 1 APPLICATION (5MG/100ML) ANNUAL
     Route: 042
     Dates: start: 20090222
  2. ACLASTA [Suspect]
     Dosage: 1 APPLICATION (5MG/100ML) ANNUAL
     Route: 042
     Dates: start: 2011
  3. ACLASTA [Suspect]
     Dosage: 1 APPLICATION (5MG/100ML) ANNUAL
     Route: 042
     Dates: start: 2012
  4. ACLASTA [Suspect]
     Dosage: 1 APPLICATION (5MG/100ML) ANNUAL
     Route: 042
     Dates: start: 2013
  5. ACTONEL [Suspect]
     Indication: OSTEOPOROSIS
     Dosage: UNK UKN, UNK
     Dates: start: 2009
  6. THYROXINE [Concomitant]
     Indication: THYROID DISORDER
     Dosage: UNK UKN, UNK
  7. PANTOPRAZOLE [Concomitant]
     Indication: ULCER
     Dosage: UNK UKN, UNK

REACTIONS (9)
  - Intestinal haemorrhage [Recovered/Resolved]
  - Haematochezia [Unknown]
  - Renal injury [Not Recovered/Not Resolved]
  - Creatinine renal clearance decreased [Unknown]
  - Eating disorder [Unknown]
  - Fasting [Unknown]
  - Bone pain [Not Recovered/Not Resolved]
  - Pain in extremity [Unknown]
  - Diarrhoea [Not Recovered/Not Resolved]
